FAERS Safety Report 13010954 (Version 1)
Quarter: 2016Q4

REPORT INFORMATION
  Report Type: Spontaneous
  Country: US (occurrence: US)
  Receive Date: 20161208
  Receipt Date: 20161208
  Transmission Date: 20170207
  Serious: Yes (Other)
  Sender: FDA-Public Use
  Company Number: US-SAOL THERAPEUTICS-2016SAO01145

PATIENT
  Age: 63 Year
  Sex: Female
  Weight: 57.6 kg

DRUGS (29)
  1. LIDOCAINE. [Concomitant]
     Active Substance: LIDOCAINE
     Dosage: UNK
     Dates: start: 20141125
  2. LIORESAL [Suspect]
     Active Substance: BACLOFEN
     Indication: MUSCLE SPASTICITY
     Dosage: UNK
     Route: 037
     Dates: start: 2000
  3. AVONEX [Concomitant]
     Active Substance: INTERFERON BETA-1A
     Dosage: UNK
     Route: 030
     Dates: start: 20060908
  4. CELEBREX [Concomitant]
     Active Substance: CELECOXIB
     Dosage: 200 MG, UNK
     Dates: start: 20151210
  5. NEURONTIN [Concomitant]
     Active Substance: GABAPENTIN
     Dosage: UNK
     Route: 048
     Dates: start: 20060908
  6. ZOLOFT [Concomitant]
     Active Substance: SERTRALINE HYDROCHLORIDE
     Dosage: UNK
     Route: 048
     Dates: start: 20060908
  7. LIORESAL [Suspect]
     Active Substance: BACLOFEN
     Indication: MULTIPLE SCLEROSIS
     Dosage: 1025.8 ?G, \DAY
     Dates: start: 20060908
  8. ASPIRIN. [Concomitant]
     Active Substance: ASPIRIN
     Dosage: 81 MG, 1X/DAY
     Route: 048
     Dates: start: 20121010
  9. COLACE [Concomitant]
     Active Substance: DOCUSATE SODIUM
     Dosage: 100 MG, UNK
     Dates: start: 20060908
  10. HIPREX [Concomitant]
     Active Substance: METHENAMINE HIPPURATE
     Dosage: UNK
     Route: 048
     Dates: start: 20060908
  11. MELOXICAM. [Concomitant]
     Active Substance: MELOXICAM
     Dosage: 15 MG, 1X/DAY
     Route: 048
     Dates: start: 20151210
  12. NITROSTAT [Concomitant]
     Active Substance: NITROGLYCERIN
     Dosage: UNK
     Route: 048
     Dates: start: 20060908
  13. ZANAFLEX [Concomitant]
     Active Substance: TIZANIDINE HYDROCHLORIDE
     Dosage: UNK UNK, 1X/DAY
     Dates: start: 20060908
  14. LIORESAL [Suspect]
     Active Substance: BACLOFEN
     Dosage: 70.1 ?G, \DAY
     Route: 037
     Dates: start: 20161112
  15. COZAAR [Concomitant]
     Active Substance: LOSARTAN POTASSIUM
     Dosage: UNK
     Route: 048
     Dates: start: 20060908
  16. LIPITOR [Concomitant]
     Active Substance: ATORVASTATIN CALCIUM
     Dosage: UNK
     Route: 048
     Dates: start: 20060908
  17. NEXIUM [Concomitant]
     Active Substance: ESOMEPRAZOLE MAGNESIUM
     Dosage: UNK
     Route: 048
     Dates: start: 20060908
  18. OMNARIS [Concomitant]
     Active Substance: CICLESONIDE
     Dosage: UNK, 2X/DAY
     Route: 045
     Dates: start: 20121010
  19. CITRACAL [Concomitant]
     Active Substance: CALCIUM CITRATE
     Dosage: UNK
     Dates: start: 20060908
  20. LEVSIN [Concomitant]
     Active Substance: HYOSCYAMINE SULFATE
     Dosage: UNK
     Route: 048
     Dates: start: 20060908
  21. OXYBUTYNIN CHLORIDE. [Concomitant]
     Active Substance: OXYBUTYNIN CHLORIDE
     Dosage: UNK
     Route: 048
     Dates: start: 20060908
  22. XYZAL [Concomitant]
     Active Substance: LEVOCETIRIZINE DIHYDROCHLORIDE
     Dosage: UNK UNK, 1X/DAY
     Route: 048
     Dates: start: 20121010
  23. ENDOCET [Concomitant]
     Active Substance: ACETAMINOPHEN\OXYCODONE HYDROCHLORIDE
     Dosage: UNK
     Route: 048
     Dates: start: 20060908
  24. KLONOPIN WAFER [Concomitant]
     Dosage: UNK
     Dates: start: 20060908
  25. OXYCODONE [Concomitant]
     Active Substance: OXYCODONE
     Dosage: 5 MG, 1X/DAY
     Route: 048
     Dates: start: 20150311
  26. MIRALAX [Concomitant]
     Active Substance: POLYETHYLENE GLYCOL 3350
     Dosage: UNK
     Dates: start: 20060908
  27. PERCOCET [Concomitant]
     Active Substance: ACETAMINOPHEN\OXYCODONE HYDROCHLORIDE
     Dosage: 1 TABLETS, AS NEEDED
     Route: 048
     Dates: start: 20161201
  28. PROVIGIL [Concomitant]
     Active Substance: MODAFINIL
     Dosage: UNK
     Route: 048
     Dates: start: 20060908
  29. TEGRETOL [Concomitant]
     Active Substance: CARBAMAZEPINE
     Dosage: UNK, 2X/DAY
     Route: 048
     Dates: start: 20121010

REACTIONS (29)
  - Intervertebral disc degeneration [Unknown]
  - Spinal osteoarthritis [Unknown]
  - Fatigue [Unknown]
  - Dyspepsia [Unknown]
  - Libido decreased [Unknown]
  - Asthenia [Unknown]
  - Myofascial spasm [Recovered/Resolved]
  - Muscle spasticity [Recovered/Resolved]
  - Device failure [Recovered/Resolved]
  - Vision blurred [Unknown]
  - Lumbar spinal stenosis [Unknown]
  - Back pain [Unknown]
  - Eye pruritus [Unknown]
  - Arthralgia [Unknown]
  - Urinary incontinence [Unknown]
  - Joint stiffness [Unknown]
  - Anxiety [Unknown]
  - Musculoskeletal pain [Unknown]
  - Neck pain [Unknown]
  - Pain [Unknown]
  - Blood urine present [Unknown]
  - Myalgia [Unknown]
  - Gait disturbance [Unknown]
  - Pain in extremity [Unknown]
  - Nasal congestion [Unknown]
  - Arthropathy [Unknown]
  - Medical device site pain [Unknown]
  - Headache [Unknown]
  - Thirst [Unknown]

NARRATIVE: CASE EVENT DATE: 20150806
